FAERS Safety Report 14413075 (Version 1)
Quarter: 2018Q1

REPORT INFORMATION
  Report Type: Spontaneous
  Country: US (occurrence: US)
  Receive Date: 20180119
  Receipt Date: 20180119
  Transmission Date: 20180509
  Serious: Yes (Hospitalization)
  Sender: FDA-Public Use
  Company Number: None

PATIENT
  Age: 67 Year
  Sex: Male
  Weight: 112.8 kg

DRUGS (15)
  1. ALDACTONE [Suspect]
     Active Substance: SPIRONOLACTONE
     Indication: HYPERTENSION
     Route: 048
  2. LORAZEPAM. [Concomitant]
     Active Substance: LORAZEPAM
  3. DYNACIN [Concomitant]
     Active Substance: MINOCYCLINE HYDROCHLORIDE
  4. TOPAMAX [Concomitant]
     Active Substance: TOPIRAMATE
  5. LISINOPRIL. [Suspect]
     Active Substance: LISINOPRIL
     Indication: HYPERTENSION
     Route: 048
  6. THERAGRAN [Concomitant]
     Active Substance: VITAMINS
  7. CALCIUM [Concomitant]
     Active Substance: CALCIUM
  8. ALDACTONE [Suspect]
     Active Substance: SPIRONOLACTONE
     Indication: HYPOALDOSTERONISM
     Route: 048
  9. APA [Concomitant]
  10. MEVACOR [Concomitant]
     Active Substance: LOVASTATIN
  11. METROGEL [Concomitant]
     Active Substance: METRONIDAZOLE
  12. BENADRYL [Concomitant]
     Active Substance: DIPHENHYDRAMINE HYDROCHLORIDE
  13. FE [Concomitant]
     Active Substance: IRON
  14. VITAMIN D [Concomitant]
     Active Substance: CHOLECALCIFEROL
  15. LOPRESSPR [Concomitant]

REACTIONS (4)
  - Hyperkalaemia [None]
  - Acute kidney injury [None]
  - Chest pain [None]
  - Chronic kidney disease [None]

NARRATIVE: CASE EVENT DATE: 20171019
